FAERS Safety Report 9436077 (Version 1)
Quarter: 2013Q3

REPORT INFORMATION
  Report Type: Spontaneous
  Country: US (occurrence: US)
  Receive Date: 20130801
  Receipt Date: 20130801
  Transmission Date: 20140515
  Serious: Yes (Other)
  Sender: FDA-Public Use
  Company Number: PHHY2013US081403

PATIENT
  Sex: 0

DRUGS (2)
  1. PACLITAXEL [Suspect]
     Indication: OVARIAN CANCER STAGE I
     Route: 064
  2. CISPLATIN [Suspect]
     Indication: OVARIAN CANCER STAGE I
     Route: 064

REACTIONS (8)
  - Low birth weight baby [Unknown]
  - Jaundice [Unknown]
  - Hyperbilirubinaemia [Unknown]
  - Tourette^s disorder [Unknown]
  - Asperger^s disorder [Unknown]
  - Dyslexia [Unknown]
  - Speech disorder developmental [Unknown]
  - Foetal exposure during pregnancy [Unknown]
